FAERS Safety Report 5900925-1 (Version None)
Quarter: 2008Q3

REPORT INFORMATION
  Report Type: 
  Country: None (occurrence: None)
  Receive Date: 20080929
  Receipt Date: 20080922
  Transmission Date: 20090109
  Serious: Yes (Other)
  Sender: FDA-Public Use
  Company Number: PHHY2008BR22196

PATIENT
  Age: 14 Year
  Sex: Male

DRUGS (2)
  1. TRILEPTAL [Suspect]
     Dosage: 600 MG, BID
     Route: 048
  2. OXCARBAZEPINE [Suspect]
     Dosage: UNK

REACTIONS (2)
  - CONVULSION [None]
  - SURGERY [None]
